FAERS Safety Report 6406581 (Version 7)
Quarter: 2012Q4

REPORT INFORMATION
  Report Type: 
  Country: US (occurrence: US)
  Receive Date: 20070905
  Receipt Date: 20121130
  Transmission Date: 20130627
  Serious: No
  Sender: FDA-Public Use
  Company Number: US-B.I. PHARMACEUTICALS,INC./RIDGEFIELD-2007-BP-07646BP

PATIENT
  Age: 69 Year
  Sex: Female

DRUGS (6)
  1. COMBIVENT INHALATION AEROSOL [Suspect]
     Indication: CHRONIC OBSTRUCTIVE PULMONARY DISEASE
     Dosage: 8 puf
     Route: 055
     Dates: start: 2002
  2. ALBUTEROL [Concomitant]
  3. AMLODIPINE BESYLATE [Concomitant]
     Indication: HYPERTENSION
     Dosage: 5 mg
     Route: 048
     Dates: start: 2011
  4. FUROSEMIDE [Concomitant]
  5. LISINOPRIL [Concomitant]
  6. UNKNOWN NEBULIZER [Concomitant]
     Indication: CHRONIC OBSTRUCTIVE PULMONARY DISEASE
     Dates: start: 2002

REACTIONS (7)
  - Dysgeusia [Not Recovered/Not Resolved]
  - Throat irritation [Unknown]
  - Chest discomfort [Unknown]
  - Dysgeusia [Not Recovered/Not Resolved]
  - Musculoskeletal pain [Not Recovered/Not Resolved]
  - Chest discomfort [Recovered/Resolved]
  - Throat irritation [Not Recovered/Not Resolved]
